FAERS Safety Report 9306080 (Version 1)
Quarter: 2013Q2

REPORT INFORMATION
  Report Type: Spontaneous
  Country: US (occurrence: None)
  Receive Date: 20130515
  Receipt Date: 20130515
  Transmission Date: 20140414
  Serious: Yes (Hospitalization)
  Sender: FDA-Public Use
  Company Number: 2013035137

PATIENT
  Age: 59 Year
  Sex: Female
  Weight: 62.14 kg

DRUGS (12)
  1. PRIVIGEN [Suspect]
     Indication: NEUROPATHY PERIPHERAL
     Dosage: 5 DAYS EVERY 4 WEEKS INTRAVENOUS (NOT OTHERWISE SPECIFIED), 25 G QD X 5 WEEKS INTRAVENOUS (NOT OTHERWISE SPECIFIED)
     Route: 042
     Dates: start: 20130320, end: 20130320
  2. DIPHENHYDRATION (DIPHENHYDRAMINE) [Concomitant]
  3. ACETAMINOPHEN (PARACETAMOL) [Concomitant]
  4. GABAPENTIN (GABAPENTIN) [Concomitant]
  5. TYLENOL (PARACETAMOL) [Concomitant]
  6. CYANOCOBALAMIN (CYANOCOBALAMIN) [Concomitant]
  7. ATIVAN (LORAZEPAM) [Concomitant]
  8. LIDOCAINE / PRILOCAINE (EMLA/ 00675501/) [Concomitant]
  9. NORMAL SALINE (SODIUM CHLORIDE) [Concomitant]
  10. SODIUM CHLORIDE [Concomitant]
  11. EPI-PEN [Concomitant]
  12. ONDANSETRON [Concomitant]

REACTIONS (4)
  - Off label use [None]
  - Dizziness [None]
  - Impaired work ability [None]
  - Hospitalisation [None]
